FAERS Safety Report 8028513-4 (Version None)
Quarter: 2012Q1

REPORT INFORMATION
  Report Type: 
  Country: None (occurrence: None)
  Receive Date: 20120106
  Receipt Date: 20120105
  Transmission Date: 20120608
  Serious: Yes (Death, Hospitalization)
  Sender: FDA-Public Use
  Company Number: NL-GENZYME-CAMP-1002063

PATIENT
  Age: 54 Year
  Sex: Male

DRUGS (11)
  1. CAMPATH [Suspect]
     Indication: T-CELL LYMPHOMA
     Dosage: 30 MG, 1 TIME ON DAYS 1 AND 2 (15-DAY CYCLE)
     Route: 058
     Dates: start: 20111125, end: 20111209
  2. FLUCONAZOLE [Concomitant]
     Indication: PROPHYLAXIS
     Dosage: 200 MG, QD
     Route: 048
  3. OMEPRAZOLE [Concomitant]
     Indication: DYSPEPSIA
     Dosage: 20 MG, QD
     Route: 048
  4. VINCRISTINE [Suspect]
     Indication: T-CELL LYMPHOMA
     Dosage: 0.5 MG, ONCE ON DAY 1 PER 22-DAY CYCLE
     Route: 042
     Dates: start: 20111118, end: 20111209
  5. CYCLOPHOSPHAMIDE [Suspect]
     Indication: T-CELL LYMPHOMA
     Dosage: 1020 MG, ONCE ON DAY 1 PER 15-DAY CYCLE
     Route: 042
     Dates: start: 20111125, end: 20111209
  6. PEGFILGRASTIM [Suspect]
     Indication: T-CELL LYMPHOMA
     Dosage: 6 MG, ONCE ON DAY 4 PER 15-DAY CYCLE
     Route: 058
     Dates: start: 20111126, end: 20111210
  7. VALACICLOVIR [Concomitant]
     Indication: PROPHYLAXIS
     Dosage: 500 MG, BID
     Route: 048
  8. DOXORUBICIN HCL [Suspect]
     Indication: T-CELL LYMPHOMA
     Dosage: 23 MG, ONCE ON DAY 1 PER 15-DAY CYCLE
     Route: 042
     Dates: start: 20111125, end: 20111209
  9. PREDNISONE TAB [Suspect]
     Indication: T-CELL LYMPHOMA
     Dosage: 100 MG, QD ON DAYS 1-5 PER 26-DAY CYCLE
     Route: 048
     Dates: start: 20111118, end: 20111213
  10. TRIMETHOPRIM + SULFAMETHOXAZOLE [Concomitant]
     Indication: PROPHYLAXIS
     Dosage: 480 MG, QD DURING PERIOD OF CHEMOTHERAPY TREATMENT
     Route: 048
  11. METOCLOPRAMIDE [Concomitant]
     Indication: PROPHYLAXIS OF NAUSEA AND VOMITING
     Dosage: 20 MG, QID
     Route: 054

REACTIONS (4)
  - T-CELL LYMPHOMA [None]
  - PNEUMONIA [None]
  - SEPTIC SHOCK [None]
  - MULTI-ORGAN FAILURE [None]
